FAERS Safety Report 5930179-1 (Version None)
Quarter: 2008Q4

REPORT INFORMATION
  Report Type: 
  Country: None (occurrence: None)
  Receive Date: 20081024
  Receipt Date: 20081017
  Transmission Date: 20090506
  Serious: Yes (Other)
  Sender: FDA-Public Use
  Company Number: US-AMGEN-US314555

PATIENT
  Sex: Female
  Weight: 87.2 kg

DRUGS (5)
  1. ENBREL [Suspect]
     Indication: PSORIATIC ARTHROPATHY
     Route: 058
     Dates: start: 20071216, end: 20080112
  2. VITAMIN TAB [Concomitant]
     Route: 048
     Dates: start: 20080112, end: 20080917
  3. CAFFEINE [Concomitant]
     Route: 048
     Dates: start: 20071216, end: 20080917
  4. ALCOHOL [Concomitant]
     Route: 048
     Dates: start: 20071216, end: 20080112
  5. GLIPIZIDE [Concomitant]
     Route: 048
     Dates: start: 20080722, end: 20080917

REACTIONS (2)
  - BETA HAEMOLYTIC STREPTOCOCCAL INFECTION [None]
  - GESTATIONAL DIABETES [None]
